FAERS Safety Report 24702265 (Version 1)
Quarter: 2024Q4

REPORT INFORMATION
  Report Type: Spontaneous
  Country: US (occurrence: US)
  Receive Date: 20241205
  Receipt Date: 20241205
  Transmission Date: 20250114
  Serious: No
  Sender: ROCHE
  Company Number: US-ROCHE-10000149815

PATIENT
  Sex: Male
  Weight: 38.56 kg

DRUGS (1)
  1. HEMLIBRA [Suspect]
     Active Substance: EMICIZUMAB-KXWH
     Indication: Factor VIII deficiency
     Dosage: STRENGTH:  60 MG/0.4ML
     Route: 058
     Dates: start: 202303

REACTIONS (2)
  - Haemorrhage [Unknown]
  - Joint swelling [Unknown]
